FAERS Safety Report 10431293 (Version 2)
Quarter: 2014Q4

REPORT INFORMATION
  Report Type: Report from Study
  Country: US (occurrence: US)
  Receive Date: 20140904
  Receipt Date: 20141002
  Transmission Date: 20150528
  Serious: Yes (Hospitalization, Other)
  Sender: FDA-Public Use
  Company Number: US-SA-2014SA116615

PATIENT
  Age: 73 Year
  Sex: Male

DRUGS (2)
  1. AUBAGIO [Suspect]
     Active Substance: TERIFLUNOMIDE
     Indication: MULTIPLE SCLEROSIS
     Route: 048
     Dates: start: 20130901, end: 20130909
  2. AUBAGIO [Suspect]
     Active Substance: TERIFLUNOMIDE
     Indication: MULTIPLE SCLEROSIS
     Route: 048
     Dates: start: 20131108, end: 20140401

REACTIONS (11)
  - Abasia [Unknown]
  - Scoliosis [Unknown]
  - Diverticulitis [Unknown]
  - Cognitive disorder [Unknown]
  - Metastasis [Unknown]
  - Dementia [Unknown]
  - Gastrointestinal disorder [Unknown]
  - Constipation [Unknown]
  - Depressed mood [Unknown]
  - Mass [Unknown]
  - Bladder disorder [Unknown]
